FAERS Safety Report 24821468 (Version 2)
Quarter: 2025Q2

REPORT INFORMATION
  Report Type: Spontaneous
  Country: US (occurrence: US)
  Receive Date: 20250108
  Receipt Date: 20250521
  Transmission Date: 20250716
  Serious: No
  Sender: SANOFI AVENTIS
  Company Number: US-SA-2025SA005600

PATIENT
  Age: 62 Year
  Sex: Female

DRUGS (1)
  1. DUPIXENT [Suspect]
     Active Substance: DUPILUMAB
     Indication: Nasal polyps
     Dosage: 300 MG, QOW
     Route: 058
     Dates: start: 20241026

REACTIONS (7)
  - Bronchitis [Unknown]
  - Cough [Unknown]
  - Nasal polyps [Unknown]
  - Condition aggravated [Unknown]
  - Paranasal sinus discomfort [Unknown]
  - Nasal congestion [Unknown]
  - Obstruction [Unknown]

NARRATIVE: CASE EVENT DATE: 20250501
